FAERS Safety Report 19499327 (Version 1)
Quarter: 2021Q3

REPORT INFORMATION
  Report Type: Spontaneous
  Country: US (occurrence: US)
  Receive Date: 20210706
  Receipt Date: 20210706
  Transmission Date: 20211014
  Serious: Yes (Other)
  Sender: FDA-Public Use
  Company Number: US-AMGEN-USASP2021101592

PATIENT
  Sex: Female

DRUGS (2)
  1. PROLIA [Suspect]
     Active Substance: DENOSUMAB
     Indication: BONE DENSITY ABNORMAL
  2. PROLIA [Suspect]
     Active Substance: DENOSUMAB
     Indication: OSTEOPOROSIS POSTMENOPAUSAL
     Dosage: 60 MILLIGRAM (EVERY 6 OR 3 MONTHS)
     Route: 058

REACTIONS (4)
  - Pain in jaw [Not Recovered/Not Resolved]
  - Hernia pain [Unknown]
  - Type 2 diabetes mellitus [Unknown]
  - Tooth fracture [Not Recovered/Not Resolved]
